FAERS Safety Report 7672384-2 (Version None)
Quarter: 2011Q3

REPORT INFORMATION
  Report Type: 
  Country: None (occurrence: None)
  Receive Date: 20110809
  Receipt Date: 20110725
  Transmission Date: 20111222
  Serious: Yes (Other)
  Sender: FDA-Public Use
  Company Number: ZA-WATSON-2011-11985

PATIENT
  Age: 16 Year
  Sex: Male

DRUGS (6)
  1. HALOPERIDOL [Suspect]
     Indication: PSYCHOTIC DISORDER
     Dosage: 5 MG, BID
  2. LORAZEPAM [Suspect]
     Indication: PRODUCT USED FOR UNKNOWN INDICATION
     Dosage: 4 MG, TID
  3. ZUCLOPENTHIXOL ACETATE [Suspect]
     Indication: PSYCHOTIC DISORDER
     Dosage: 50 MG, X 2
     Route: 030
  4. CANNABIS [Suspect]
     Indication: SUBSTANCE ABUSE
     Dosage: UNK
  5. METHAMPHETAMINE HYDROCHLORIDE [Suspect]
     Indication: SUBSTANCE ABUSE
     Dosage: UNK
  6. ALCOHOL [Suspect]
     Indication: SUBSTANCE ABUSE
     Dosage: UNK

REACTIONS (1)
  - NEUROLEPTIC MALIGNANT SYNDROME [None]
